FAERS Safety Report 24641294 (Version 2)
Quarter: 2024Q4

REPORT INFORMATION
  Report Type: Spontaneous
  Country: JP (occurrence: JP)
  Receive Date: 20241120
  Receipt Date: 20241204
  Transmission Date: 20250115
  Serious: Yes (Other)
  Sender: ALEXION PHARMACEUTICALS
  Company Number: JP-ASTRAZENECA-240125984_064320_P_1

PATIENT
  Age: 81 Year

DRUGS (14)
  1. ANDEXXA [Suspect]
     Active Substance: ANDEXANET ALFA
     Indication: Cerebral haemorrhage
     Dosage: METHOD B: 800 MG IV AT A RATE OF 30 MG/MIN FOLLOWED BY 960 MG IV AT A RATE OF 8 MG/MIN FOR 2 HRS
  2. ANDEXXA [Suspect]
     Active Substance: ANDEXANET ALFA
     Dosage: METHOD B: 800 MG IV AT A RATE OF 30 MG/MIN FOLLOWED BY 960 MG IV AT A RATE OF 8 MG/MIN FOR 2 HRS
  3. ANDEXXA [Suspect]
     Active Substance: ANDEXANET ALFA
     Dosage: METHOD B: 800 MG IV AT A RATE OF 30 MG/MIN FOLLOWED BY 960 MG IV AT A RATE OF 8 MG/MIN FOR 2 HRS
  4. ANDEXXA [Suspect]
     Active Substance: ANDEXANET ALFA
     Dosage: METHOD B: 800 MG IV AT A RATE OF 30 MG/MIN FOLLOWED BY 960 MG IV AT A RATE OF 8 MG/MIN FOR 2 HRS
  5. ANDEXXA [Suspect]
     Active Substance: ANDEXANET ALFA
     Dosage: 400 MG IV AT A RATE OF 30 MG/MIN FOLLOWED BY 480 MG IV AT A RATE OF 4 MG/MIN FOR 2 HRS
  6. ANDEXXA [Suspect]
     Active Substance: ANDEXANET ALFA
     Dosage: 400 MG IV AT A RATE OF 30 MG/MIN FOLLOWED BY 480 MG IV AT A RATE OF 4 MG/MIN FOR 2 HRS
  7. ANDEXXA [Suspect]
     Active Substance: ANDEXANET ALFA
     Dosage: 400 MG IV AT A RATE OF 30 MG/MIN FOLLOWED BY 480 MG IV AT A RATE OF 4 MG/MIN FOR 2 HRS
  8. ANDEXXA [Suspect]
     Active Substance: ANDEXANET ALFA
     Dosage: 400 MG IV AT A RATE OF 30 MG/MIN FOLLOWED BY 480 MG IV AT A RATE OF 4 MG/MIN FOR 2 HRS
  9. EDOXABAN TOSYLATE [Concomitant]
     Active Substance: EDOXABAN TOSYLATE
  10. EDOXABAN TOSYLATE [Concomitant]
     Active Substance: EDOXABAN TOSYLATE
  11. EDOXABAN TOSYLATE [Concomitant]
     Active Substance: EDOXABAN TOSYLATE
  12. EDOXABAN TOSYLATE [Concomitant]
     Active Substance: EDOXABAN TOSYLATE
  13. ASPIRIN [Concomitant]
     Active Substance: ASPIRIN
     Dosage: 100 MILLIGRAM
  14. ASPIRIN [Concomitant]
     Active Substance: ASPIRIN
     Dosage: 100 MILLIGRAM
     Route: 065

REACTIONS (1)
  - Haematoma [Unknown]
